FAERS Safety Report 8479989-X (Version None)
Quarter: 2012Q2

REPORT INFORMATION
  Report Type: 
  Country: None (occurrence: None)
  Receive Date: 20120629
  Receipt Date: 20120625
  Transmission Date: 20120825
  Serious: Yes (Death, Hospitalization, Other)
  Sender: FDA-Public Use
  Company Number: BE-CELGENEUS-013-21880-11021080

PATIENT
  Age: 72 Year
  Sex: Male
  Weight: 80 kg

DRUGS (26)
  1. REVLIMID [Suspect]
     Dosage: 25 MILLIGRAM
     Route: 048
     Dates: end: 20100926
  2. SINTROM [Concomitant]
     Indication: THROMBOSIS PROPHYLAXIS
     Dosage: 1 MILLIGRAM
     Route: 048
     Dates: start: 20100817, end: 20100819
  3. REVLIMID [Suspect]
     Dosage: 25 MILLIGRAM
     Route: 048
     Dates: start: 20100806, end: 20100914
  4. AUGMENTIN '125' [Concomitant]
     Indication: ANTI-INFECTIVE THERAPY
     Dosage: 3000 MILLIGRAM
     Route: 041
     Dates: start: 20100816, end: 20100820
  5. DEXAMETHASONE [Suspect]
     Dosage: 5.7143 MILLIGRAM
     Route: 048
     Dates: end: 20100926
  6. CORUNO [Concomitant]
     Indication: ANGINA PECTORIS
     Dosage: 16 MILLIGRAM
     Route: 048
  7. LASIX [Concomitant]
     Indication: FLUID RETENTION
     Dosage: 40 MILLIGRAM
     Route: 048
     Dates: start: 20100701, end: 20100813
  8. GABAPENTIN [Concomitant]
     Dosage: 900 MILLIGRAM
     Route: 048
     Dates: start: 20090316
  9. DEXAMETHASONE [Suspect]
     Dosage: 5.7143 MILLIGRAM
     Route: 048
     Dates: start: 20100806, end: 20100914
  10. ACETAMINOPHEN [Concomitant]
     Indication: PAIN
     Dosage: 2 GRAM
     Route: 048
     Dates: start: 20100816
  11. TRAMADOL HCL [Concomitant]
     Indication: PAIN
     Dosage: 60 DROPS
     Route: 048
     Dates: start: 20100820
  12. LIPITOR [Concomitant]
     Dosage: 20 MILLIGRAM
     Route: 048
  13. PANTOPRAZOLE [Concomitant]
     Dosage: 20 MILLIGRAM
     Route: 048
     Dates: start: 20100816
  14. DURAGESIC-100 [Concomitant]
     Indication: PAIN
     Dosage: 18.75 MICROGRAM
     Route: 023
     Dates: start: 20100816, end: 20100817
  15. VOLTAREN [Concomitant]
     Indication: PAIN
     Dosage: 150 MILLIGRAM
     Route: 048
     Dates: start: 20100816
  16. ASPIRIN [Concomitant]
     Indication: ANGINA PECTORIS
     Dosage: 160 MILLIGRAM
     Route: 048
     Dates: start: 20100816
  17. REVLIMID [Suspect]
     Indication: MULTIPLE MYELOMA
     Dosage: 25 MILLIGRAM
     Route: 048
     Dates: start: 20100702
  18. BELSAR [Concomitant]
     Indication: HYPERTENSION
     Dosage: 40 MILLIGRAM
     Route: 048
  19. DILTIAZEM HCL [Concomitant]
     Indication: ANGINA PECTORIS
     Dosage: 300 MILLIGRAM
     Route: 048
  20. ACETAMINOPHEN [Concomitant]
     Dosage: 500 MILLIGRAM
     Route: 048
     Dates: start: 20100824, end: 20100824
  21. SINTROM [Concomitant]
     Dosage: 3 MILLIGRAM
     Route: 048
     Dates: start: 20100820
  22. ASPIRIN [Concomitant]
     Dosage: 3 MILLIGRAM
     Route: 048
     Dates: start: 20100820
  23. TRAMADOL HCL [Concomitant]
     Dosage: 3 MILLIGRAM
     Route: 048
     Dates: start: 20100820
  24. ESCITALOPRAM OXALATE [Concomitant]
     Indication: DEPRESSION
     Dosage: 10 MILLIGRAM
     Route: 048
     Dates: start: 20100817
  25. DEXAMETHASONE [Suspect]
     Indication: MULTIPLE MYELOMA
     Dosage: 5.7143 MILLIGRAM
     Route: 048
     Dates: start: 20100702
  26. PERFUSALGAN [Concomitant]
     Indication: PAIN
     Dosage: 5 GRAM
     Route: 041
     Dates: start: 20100816, end: 20100822

REACTIONS (2)
  - GENERAL PHYSICAL HEALTH DETERIORATION [None]
  - PANCREATIC CARCINOMA METASTATIC [None]
